FAERS Safety Report 9523728 (Version 1)
Quarter: 2013Q3

REPORT INFORMATION
  Report Type: Spontaneous
  Country: US (occurrence: US)
  Receive Date: 20130914
  Receipt Date: 20130914
  Transmission Date: 20140515
  Serious: No
  Sender: FDA-Public Use
  Company Number: US-B.I. PHARMACEUTICALS,INC./RIDGEFIELD-2013-BI-27368BP

PATIENT
  Sex: Female
  Weight: 68 kg

DRUGS (4)
  1. COMBIVENT [Suspect]
     Indication: ASTHMA
     Dosage: STRENGTH: 18 MCG / 103 MCG; DAILY DOSE: 144 MCG/824 MCG
     Route: 055
     Dates: end: 201307
  2. COREG [Concomitant]
     Indication: CARDIAC DISORDER
     Dosage: 20 MG
     Route: 048
  3. THEOPHYLLINE [Concomitant]
     Indication: ASTHMA
     Dosage: 300 MG
     Route: 048
  4. SINGULAIR [Concomitant]
     Indication: HYPERSENSITIVITY
     Dosage: 10 MG
     Route: 048

REACTIONS (1)
  - Off label use [Recovered/Resolved]
